FAERS Safety Report 7783994-6 (Version None)
Quarter: 2011Q3

REPORT INFORMATION
  Report Type: 
  Country: None (occurrence: None)
  Receive Date: 20110928
  Receipt Date: 20110914
  Transmission Date: 20111222
  Serious: Yes (Hospitalization, Other)
  Sender: FDA-Public Use
  Company Number: PT-BAYER-2011-085785

PATIENT
  Age: 8 Year

DRUGS (2)
  1. IBUPROFEN [Suspect]
     Indication: PYREXIA
  2. CORTICOSTEROIDS [Suspect]

REACTIONS (6)
  - NECROTISING FASCIITIS [None]
  - DISSEMINATED INTRAVASCULAR COAGULATION [None]
  - HEPATIC FAILURE [None]
  - RENAL FAILURE [None]
  - STREPTOCOCCUS TEST POSITIVE [None]
  - TOXIC SHOCK SYNDROME STREPTOCOCCAL [None]
